FAERS Safety Report 10340384 (Version 1)
Quarter: 2014Q3

REPORT INFORMATION
  Report Type: Report from Study
  Country: CO (occurrence: CO)
  Receive Date: 20140724
  Receipt Date: 20140724
  Transmission Date: 20150326
  Serious: Yes (Other)
  Sender: FDA-Public Use
  Company Number: CO-BRISTOL-MYERS SQUIBB COMPANY-21209481

PATIENT
  Sex: Female

DRUGS (1)
  1. DASATINIB [Suspect]
     Active Substance: DASATINIB
     Indication: CHRONIC MYELOID LEUKAEMIA
     Dosage: TABLET
     Route: 048
     Dates: start: 20130422

REACTIONS (2)
  - Eye inflammation [Unknown]
  - Facial pain [Unknown]

NARRATIVE: CASE EVENT DATE: 20140702
